FAERS Safety Report 4521017-2 (Version None)
Quarter: 2004Q4

REPORT INFORMATION
  Report Type: 
  Country: None (occurrence: None)
  Receive Date: 20041208
  Receipt Date: 20041124
  Transmission Date: 20050328
  Serious: Yes (Hospitalization)
  Sender: FDA-Public Use
  Company Number: 200419142US

PATIENT
  Age: 77 Year
  Sex: Male

DRUGS (3)
  1. KETEK [Suspect]
     Indication: SINUSITIS
     Dates: start: 20041116
  2. CRESTOR [Concomitant]
  3. CHLOR-TRIMETON [Concomitant]

REACTIONS (1)
  - CHEST PAIN [None]
